FAERS Safety Report 19182450 (Version 4)
Quarter: 2021Q3

REPORT INFORMATION
  Report Type: Report from Study
  Country: JP (occurrence: JP)
  Receive Date: 20210427
  Receipt Date: 20210727
  Transmission Date: 20211014
  Serious: Yes (Disabling)
  Sender: FDA-Public Use
  Company Number: JP-CELLTRION INC.-2021JP005540

PATIENT

DRUGS (37)
  1. CT?P6 [Suspect]
     Active Substance: INVESTIGATIONAL BIOSIMILARS
     Dosage: 300 MILLIGRAM, QD
     Route: 041
     Dates: start: 20200513, end: 20200513
  2. CT?P6 [Suspect]
     Active Substance: INVESTIGATIONAL BIOSIMILARS
     Dosage: 300 MILLIGRAM, QD
     Route: 041
     Dates: start: 20200722, end: 20200722
  3. CT?P6 [Suspect]
     Active Substance: INVESTIGATIONAL BIOSIMILARS
     Dosage: 300 MILLIGRAM, QD
     Route: 041
     Dates: start: 20210104, end: 20210104
  4. OXALIPLATIN. [Suspect]
     Active Substance: OXALIPLATIN
     Dosage: 160 MG, QD
     Route: 041
     Dates: start: 20200909, end: 20200909
  5. AMITIZA [Concomitant]
     Active Substance: LUBIPROSTONE
     Indication: CONSTIPATION
     Dosage: UNK
  6. ALDIOXA [Concomitant]
     Active Substance: ALDIOXA
     Indication: HER2 POSITIVE GASTRIC CANCER
     Dosage: UNK
  7. CT?P6 [Suspect]
     Active Substance: INVESTIGATIONAL BIOSIMILARS
     Indication: HER2 POSITIVE GASTRIC CANCER
     Dosage: 420 MILLIGRAM, QD
     Route: 041
     Dates: start: 20200422, end: 20200422
  8. CT?P6 [Suspect]
     Active Substance: INVESTIGATIONAL BIOSIMILARS
     Dosage: 300 MILLIGRAM, QD
     Route: 041
     Dates: start: 20200819, end: 20200819
  9. OXALIPLATIN. [Suspect]
     Active Substance: OXALIPLATIN
     Dosage: 160 MG, QD
     Route: 041
     Dates: start: 20200722, end: 20200722
  10. OXALIPLATIN. [Suspect]
     Active Substance: OXALIPLATIN
     Dosage: 120 MG, QD
     Route: 041
     Dates: start: 20200930, end: 20200930
  11. TEGAFUR GIMERACIL AND OTERACIL POTASSIUM [Suspect]
     Active Substance: GIMERACIL\OTERACIL\TEGAFUR
     Dosage: 100 MG, QD
     Route: 048
     Dates: start: 20201209, end: 20201223
  12. CT?P6 [Suspect]
     Active Substance: INVESTIGATIONAL BIOSIMILARS
     Dosage: 300 MILLIGRAM, QD
     Route: 041
     Dates: start: 20200610, end: 20200610
  13. CT?P6 [Suspect]
     Active Substance: INVESTIGATIONAL BIOSIMILARS
     Dosage: 300 MILLIGRAM, QD
     Route: 041
     Dates: start: 20200909, end: 20200909
  14. CT?P6 [Suspect]
     Active Substance: INVESTIGATIONAL BIOSIMILARS
     Dosage: 300 MILLIGRAM, QD
     Route: 041
     Dates: start: 20200930, end: 20200930
  15. CT?P6 [Suspect]
     Active Substance: INVESTIGATIONAL BIOSIMILARS
     Dosage: 300 MILLIGRAM, QD
     Route: 041
     Dates: start: 20201028, end: 20201028
  16. TEGAFUR GIMERACIL AND OTERACIL POTASSIUM [Suspect]
     Active Substance: GIMERACIL\OTERACIL\TEGAFUR
     Dosage: 100 MG, QD
     Route: 048
     Dates: start: 20200513, end: 20200527
  17. TEGAFUR GIMERACIL AND OTERACIL POTASSIUM [Suspect]
     Active Substance: GIMERACIL\OTERACIL\TEGAFUR
     Dosage: 100 MG, QD
     Route: 048
     Dates: start: 20200610, end: 20200624
  18. CT?P6 [Suspect]
     Active Substance: INVESTIGATIONAL BIOSIMILARS
     Dosage: 300 MILLIGRAM, QD
     Route: 041
     Dates: start: 20200701, end: 20200701
  19. CT?P6 [Suspect]
     Active Substance: INVESTIGATIONAL BIOSIMILARS
     Dosage: 300 MILLIGRAM, QD
     Route: 041
     Dates: start: 20201118, end: 20201118
  20. CT?P6 [Suspect]
     Active Substance: INVESTIGATIONAL BIOSIMILARS
     Dosage: 300 MILLIGRAM, QD
     Route: 041
     Dates: start: 20201209, end: 20201209
  21. OXALIPLATIN. [Suspect]
     Active Substance: OXALIPLATIN
     Dosage: 160 MG, QD
     Route: 041
     Dates: start: 20200819, end: 20200819
  22. TEGAFUR GIMERACIL AND OTERACIL POTASSIUM [Suspect]
     Active Substance: GIMERACIL\OTERACIL\TEGAFUR
     Dosage: 100 MG, QD
     Route: 048
     Dates: start: 20200819, end: 20200902
  23. TEGAFUR GIMERACIL AND OTERACIL POTASSIUM [Suspect]
     Active Substance: GIMERACIL\OTERACIL\TEGAFUR
     Dosage: 100 MG, QD
     Route: 048
     Dates: start: 20200909, end: 20200923
  24. TEGAFUR GIMERACIL AND OTERACIL POTASSIUM [Suspect]
     Active Substance: GIMERACIL\OTERACIL\TEGAFUR
     Dosage: 100 MG, QD
     Route: 048
     Dates: start: 20200930, end: 20201014
  25. TEGAFUR GIMERACIL AND OTERACIL POTASSIUM [Suspect]
     Active Substance: GIMERACIL\OTERACIL\TEGAFUR
     Dosage: 100 MG, QD
     Route: 048
     Dates: start: 20210104, end: 20210118
  26. OXALIPLATIN. [Suspect]
     Active Substance: OXALIPLATIN
     Dosage: 160 MG, QD
     Route: 041
     Dates: start: 20200513, end: 20200513
  27. OXALIPLATIN. [Suspect]
     Active Substance: OXALIPLATIN
     Dosage: 160 MG, QD
     Route: 041
     Dates: start: 20200610, end: 20200610
  28. OXALIPLATIN. [Suspect]
     Active Substance: OXALIPLATIN
     Dosage: 160 MG, QD
     Route: 041
     Dates: start: 20200701, end: 20200701
  29. TEGAFUR GIMERACIL AND OTERACIL POTASSIUM [Suspect]
     Active Substance: GIMERACIL\OTERACIL\TEGAFUR
     Dosage: 100 MG, QD
     Route: 048
     Dates: start: 20200701, end: 20200715
  30. TEGAFUR GIMERACIL AND OTERACIL POTASSIUM [Suspect]
     Active Substance: GIMERACIL\OTERACIL\TEGAFUR
     Dosage: 100 MG, QD
     Route: 048
     Dates: start: 20201028, end: 20201111
  31. TEGAFUR GIMERACIL AND OTERACIL POTASSIUM [Suspect]
     Active Substance: GIMERACIL\OTERACIL\TEGAFUR
     Dosage: 100 MG, QD
     Route: 048
     Dates: start: 20201118, end: 20201202
  32. TEGAFUR GIMERACIL AND OTERACIL POTASSIUM [Suspect]
     Active Substance: GIMERACIL\OTERACIL\TEGAFUR
     Dosage: 100 MG, QD
     Route: 048
     Dates: start: 20210127, end: 20210210
  33. SIMVASTATIN. [Concomitant]
     Active Substance: SIMVASTATIN
     Indication: HYPERLIPIDAEMIA
     Dosage: UNK
  34. BLOSTAR M [Concomitant]
     Indication: HER2 POSITIVE GASTRIC CANCER
     Dosage: UNK
  35. OXALIPLATIN. [Suspect]
     Active Substance: OXALIPLATIN
     Indication: HER2 POSITIVE GASTRIC CANCER
     Dosage: 200 MG, QD
     Route: 041
     Dates: start: 20200422, end: 20200422
  36. TEGAFUR GIMERACIL AND OTERACIL POTASSIUM [Suspect]
     Active Substance: GIMERACIL\OTERACIL\TEGAFUR
     Indication: HER2 POSITIVE GASTRIC CANCER
     Dosage: 120 MILLIGRAM, QD
     Route: 048
     Dates: start: 20200422, end: 20200506
  37. TEGAFUR GIMERACIL AND OTERACIL POTASSIUM [Suspect]
     Active Substance: GIMERACIL\OTERACIL\TEGAFUR
     Dosage: 100 MG, QD
     Route: 048
     Dates: start: 20200722, end: 20200805

REACTIONS (3)
  - Off label use [Unknown]
  - Neuropathy peripheral [Recovering/Resolving]
  - Decreased appetite [Recovered/Resolved]

NARRATIVE: CASE EVENT DATE: 20200501
